FAERS Safety Report 9643929 (Version 2)
Quarter: 2015Q2

REPORT INFORMATION
  Report Type: Spontaneous
  Country: CH (occurrence: CH)
  Receive Date: 20131024
  Receipt Date: 20150520
  Transmission Date: 20150821
  Serious: Yes (Other)
  Sender: FDA-Public Use
  Company Number: PHHY2013CH117829

PATIENT
  Age: 14 Year
  Sex: Female
  Weight: 29 kg

DRUGS (3)
  1. AMIODARONE [Suspect]
     Active Substance: AMIODARONE
     Indication: ATRIAL FIBRILLATION
     Route: 065
  2. AMIODARONE [Suspect]
     Active Substance: AMIODARONE
     Indication: TRICUSPID VALVE INCOMPETENCE
  3. AMIODARONE [Suspect]
     Active Substance: AMIODARONE
     Indication: MITRAL VALVE INCOMPETENCE

REACTIONS (9)
  - Polyneuropathy [Unknown]
  - Hypoaesthesia [Unknown]
  - Pain in extremity [Unknown]
  - Areflexia [Unknown]
  - Paraesthesia [Unknown]
  - Rhabdomyolysis [Unknown]
  - Muscular weakness [Unknown]
  - Radiculopathy [Unknown]
  - Sensory loss [Unknown]
